FAERS Safety Report 12730228 (Version 1)
Quarter: 2020Q3

REPORT INFORMATION
  Report Type: Report from Study
  Country: GB (occurrence: GB)
  Receive Date: 20160909
  Receipt Date: 20160909
  Transmission Date: 20201104
  Serious: Yes (Other)
  Sender: FDA-Public Use
  Company Number: GB-SA-2016SA071225

PATIENT
  Age: 66 Year
  Sex: Female
  Weight: 68.4 kg

DRUGS (8)
  1. VANDETANIB. [Suspect]
     Active Substance: VANDETANIB
     Indication: RECTAL CANCER METASTATIC
     Route: 048
     Dates: start: 20151026, end: 20151027
  2. SELUMETINIB. [Suspect]
     Active Substance: SELUMETINIB
     Indication: RECTAL CANCER METASTATIC
     Route: 048
     Dates: start: 20151026, end: 20151027
  3. SELUMETINIB. [Suspect]
     Active Substance: SELUMETINIB
     Indication: RECTAL CANCER METASTATIC
     Route: 048
     Dates: start: 20151102, end: 20151117
  4. SELUMETINIB. [Suspect]
     Active Substance: SELUMETINIB
     Indication: RECTAL CANCER METASTATIC
     Route: 048
     Dates: start: 20151130
  5. VANDETANIB. [Suspect]
     Active Substance: VANDETANIB
     Indication: RECTAL CANCER METASTATIC
     Route: 048
     Dates: start: 20151014, end: 20151025
  6. VANDETANIB. [Suspect]
     Active Substance: VANDETANIB
     Indication: RECTAL CANCER METASTATIC
     Route: 048
     Dates: start: 20151012, end: 20151013
  7. VANDETANIB. [Suspect]
     Active Substance: VANDETANIB
     Indication: RECTAL CANCER METASTATIC
     Route: 048
     Dates: start: 20151130
  8. VANDETANIB. [Suspect]
     Active Substance: VANDETANIB
     Indication: RECTAL CANCER METASTATIC
     Route: 048
     Dates: start: 20151102, end: 20151117

REACTIONS (1)
  - Retinal haemorrhage [Recovered/Resolved]

NARRATIVE: CASE EVENT DATE: 20151028
